FAERS Safety Report 16239004 (Version 2)
Quarter: 2019Q2

REPORT INFORMATION
  Report Type: Spontaneous
  Country: US (occurrence: US)
  Receive Date: 20190425
  Receipt Date: 20190627
  Transmission Date: 20190711
  Serious: No
  Sender: FDA-Public Use
  Company Number: US-SA-2019SA111335

PATIENT
  Age: 59 Year
  Sex: Female

DRUGS (3)
  1. KEVZARA [Suspect]
     Active Substance: SARILUMAB
     Dosage: 200 MG, QOW
     Route: 058
     Dates: start: 201806
  2. RASUVO [Concomitant]
     Active Substance: METHOTREXATE SODIUM
  3. MELOXICAM. [Suspect]
     Active Substance: MELOXICAM

REACTIONS (3)
  - Back pain [Unknown]
  - Pain in extremity [Unknown]
  - Inflammation [Unknown]
